FAERS Safety Report 4654559-X (Version None)
Quarter: 2005Q2

REPORT INFORMATION
  Report Type: 
  Country: None (occurrence: None)
  Receive Date: 20050504
  Receipt Date: 20050504
  Transmission Date: 20051028
  Serious: No
  Sender: FDA-Public Use
  Company Number: None

PATIENT
  Sex: Male
  Weight: 40.4 kg

DRUGS (4)
  1. CARBOPLATIN [Suspect]
     Indication: MEDULLOBLASTOMA
     Dosage: 5-35 MG/M2/DAY CBDCA M-F FOR SIX WEEKS
     Dates: start: 20040802
  2. CYCLOPHOSPHAMIDE [Suspect]
  3. VINCRISTINE [Suspect]
  4. CISPLATIN [Suspect]

REACTIONS (8)
  - ACUTE RESPIRATORY DISTRESS SYNDROME [None]
  - ARTHRALGIA [None]
  - CELLULITIS [None]
  - ERYTHEMA [None]
  - MUSCLE ABSCESS [None]
  - NEUTROPENIA [None]
  - PYREXIA [None]
  - SKIN OEDEMA [None]
